FAERS Safety Report 22085007 (Version 1)
Quarter: 2023Q1

REPORT INFORMATION
  Report Type: Spontaneous
  Country: US (occurrence: US)
  Receive Date: 20230310
  Receipt Date: 20230310
  Transmission Date: 20230418
  Serious: No
  Sender: FDA-Public Use
  Company Number: US-GSK-US2023033200

PATIENT
  Age: 78 Year
  Sex: Female

DRUGS (1)
  1. INCRUSE ELLIPTA [Suspect]
     Active Substance: UMECLIDINIUM BROMIDE
     Indication: Cardiac asthma
     Dosage: 1 PUFF(S), QD, 62.5MCG ORAL INH 30USE 1 INHALATION BY MOUTH EVERY DAY

REACTIONS (3)
  - Dyspnoea [Not Recovered/Not Resolved]
  - Speech disorder [Unknown]
  - Product use in unapproved indication [Unknown]

NARRATIVE: CASE EVENT DATE: 20230227
